FAERS Safety Report 8813475 (Version 1)
Quarter: 2012Q4

REPORT INFORMATION
  Report Type: 
  Country: US (occurrence: US)
  Receive Date: 20120927
  Receipt Date: 20120927
  Transmission Date: 20130627
  Serious: No
  Sender: FDA-Public Use
  Company Number: US-AMGEN-USASP2012046257

PATIENT
  Age: 61 Year
  Sex: Female

DRUGS (10)
  1. PROLIA [Suspect]
     Indication: OSTEOPENIA
     Dosage: 60 mg, q6mo
     Dates: start: 20111122
  2. HYDROXYCHLOROQUINE [Concomitant]
     Dosage: UNK mg, UNK
  3. VIREAD [Concomitant]
     Dosage: UNK mg, UNK
  4. METOPROLOL [Concomitant]
     Dosage: UNK mg, UNK
  5. LEVOTHROID [Concomitant]
     Dosage: UNK mg, UNK
  6. AMLODIPINE [Concomitant]
     Dosage: UNK mg, UNK
  7. TRICOR                             /00090101/ [Concomitant]
     Dosage: 48 mg, qod
  8. VITAMIN B12                        /00056201/ [Concomitant]
  9. PRILOSEC                           /00661201/ [Concomitant]
     Dosage: UNK
  10. VITAMIN D /00107901/ [Concomitant]

REACTIONS (5)
  - Acne pustular [Not Recovered/Not Resolved]
  - Bronchitis [Recovered/Resolved]
  - Helicobacter gastritis [Unknown]
  - Nasopharyngitis [Recovered/Resolved]
  - Rash [Unknown]
